FAERS Safety Report 10196703 (Version 1)
Quarter: 2014Q2

REPORT INFORMATION
  Report Type: Spontaneous
  Country: CH (occurrence: CH)
  Receive Date: 20140527
  Receipt Date: 20140527
  Transmission Date: 20141212
  Serious: Yes (Other)
  Sender: FDA-Public Use
  Company Number: CH-ASTRAZENECA-2014SE34262

PATIENT
  Age: 62 Year
  Sex: Female

DRUGS (3)
  1. EMLA CREAM [Suspect]
     Indication: PAIN
     Dosage: 25 MG LIDOCAINE+25 MG PRILOCAINE , 1 DF, 1 TOTAL
     Route: 061
     Dates: start: 20140202, end: 20140202
  2. RAMERON [Concomitant]
     Indication: DEPRESSION
     Route: 048
     Dates: start: 2011
  3. RAMERON [Concomitant]
     Indication: DEPRESSION
     Dosage: QUARTER OF A TABLET , DAILY
     Route: 048
     Dates: start: 2011

REACTIONS (2)
  - Transient global amnesia [Recovered/Resolved]
  - Off label use [Recovered/Resolved]
